FAERS Safety Report 16985815 (Version 1)
Quarter: 2019Q4

REPORT INFORMATION
  Report Type: Spontaneous
  Country: US (occurrence: US)
  Receive Date: 20191101
  Receipt Date: 20191101
  Transmission Date: 20200122
  Serious: Yes (Other)
  Sender: FDA-Public Use
  Company Number: US-JNJFOC-20191034816

PATIENT
  Sex: Female

DRUGS (1)
  1. ERDAFITINIB TABLET [Suspect]
     Active Substance: ERDAFITINIB
     Indication: METASTATIC CARCINOMA OF THE BLADDER
     Route: 048

REACTIONS (7)
  - Limb injury [Not Recovered/Not Resolved]
  - Musculoskeletal pain [Unknown]
  - Thrombosis [Unknown]
  - Pain in extremity [Not Recovered/Not Resolved]
  - Impaired healing [Not Recovered/Not Resolved]
  - Blood phosphorus increased [Unknown]
  - Arthralgia [Unknown]
